FAERS Safety Report 5011261-2 (Version None)
Quarter: 2006Q2

REPORT INFORMATION
  Report Type: 
  Country: None (occurrence: None)
  Receive Date: 20060525
  Receipt Date: 20051228
  Transmission Date: 20061013
  Serious: Yes (Hospitalization)
  Sender: FDA-Public Use
  Company Number: US-AVENTIS-200520936US

PATIENT
  Sex: Male
  Weight: 47.7 kg

DRUGS (4)
  1. LANTUS [Suspect]
     Indication: DIABETES MELLITUS
     Dosage: DOSE UNIT: UNITS
     Route: 058
     Dates: start: 20050701
  2. LANTUS [Suspect]
  3. OPTICLIK (INSULIN INJECTION PEN) [Suspect]
     Indication: DIABETES MELLITUS
     Dates: start: 20050701
  4. HUMALOG [Concomitant]
     Indication: DIABETES MELLITUS
     Dosage: DOSE: SLIDING SCALE 5-6; DOSE UNIT: UNITS
     Route: 058

REACTIONS (4)
  - BLOOD GLUCOSE INCREASED [None]
  - CARBON DIOXIDE DECREASED [None]
  - DEVICE FAILURE [None]
  - HYPERGLYCAEMIA [None]
